FAERS Safety Report 9930969 (Version 2)
Quarter: 2014Q1

REPORT INFORMATION
  Report Type: Spontaneous
  Country: US (occurrence: US)
  Receive Date: 20140227
  Receipt Date: 20140227
  Transmission Date: 20141002
  Serious: No
  Sender: FDA-Public Use
  Company Number: US-AMGEN-USASP2013086623

PATIENT
  Age: 75 Year
  Sex: Female

DRUGS (1)
  1. ENBREL [Suspect]
     Indication: RHEUMATOID ARTHRITIS
     Dosage: 50 MG, QWK
     Route: 065
     Dates: start: 20131021

REACTIONS (11)
  - Gait disturbance [Not Recovered/Not Resolved]
  - Arthralgia [Not Recovered/Not Resolved]
  - Spinal pain [Not Recovered/Not Resolved]
  - Musculoskeletal pain [Not Recovered/Not Resolved]
  - Rheumatoid arthritis [Unknown]
  - Vision blurred [Not Recovered/Not Resolved]
  - Productive cough [Not Recovered/Not Resolved]
  - Pain in extremity [Not Recovered/Not Resolved]
  - Joint effusion [Not Recovered/Not Resolved]
  - Respiratory tract congestion [Not Recovered/Not Resolved]
  - Paraesthesia [Not Recovered/Not Resolved]
